FAERS Safety Report 4406828-6 (Version None)
Quarter: 2004Q3

REPORT INFORMATION
  Report Type: 
  Country: None (occurrence: None)
  Receive Date: 20040723
  Receipt Date: 20031121
  Transmission Date: 20050211
  Serious: Yes (Disabling)
  Sender: FDA-Public Use
  Company Number: US-MERCK-0311USA02529

PATIENT
  Age: 61 Year
  Sex: Female
  Weight: 73 kg

DRUGS (8)
  1. ULTRACET [Concomitant]
     Indication: ARTHRALGIA
     Route: 065
     Dates: start: 19990101
  2. PREMARIN [Concomitant]
     Route: 065
     Dates: start: 19890901, end: 20030101
  3. DYAZIDE [Concomitant]
     Route: 065
     Dates: start: 19980101, end: 20021101
  4. SKELAXIN [Concomitant]
     Route: 065
     Dates: start: 19990101, end: 20031101
  5. VIOXX [Suspect]
     Indication: ARTHRALGIA
     Route: 048
     Dates: end: 20021010
  6. ZOLOFT [Concomitant]
     Indication: DEPRESSION
     Route: 065
     Dates: start: 19990101, end: 20030601
  7. BEXTRA [Concomitant]
     Indication: ARTHRITIS
     Route: 065
  8. BEXTRA [Concomitant]
     Indication: FIBROMYALGIA
     Route: 065

REACTIONS (8)
  - ARTHRALGIA [None]
  - BLOOD CHOLESTEROL INCREASED [None]
  - CARDIAC DISORDER [None]
  - DEPRESSION [None]
  - DYSPNOEA [None]
  - HEPATITIS B [None]
  - HYPERSENSITIVITY [None]
  - NECK PAIN [None]
